FAERS Safety Report 16307483 (Version 1)
Quarter: 2019Q2

REPORT INFORMATION
  Report Type: Spontaneous
  Country: CO (occurrence: CO)
  Receive Date: 20190514
  Receipt Date: 20190514
  Transmission Date: 20190711
  Serious: Yes (Other)
  Sender: FDA-Public Use
  Company Number: CO-ROCHE-2314440

PATIENT
  Age: 59 Year
  Sex: Female
  Weight: 53 kg

DRUGS (7)
  1. HERCEPTIN [Suspect]
     Active Substance: TRASTUZUMAB
     Dosage: LOADING DOSE
     Route: 042
     Dates: start: 20140710
  2. PERJETA [Suspect]
     Active Substance: PERTUZUMAB
     Indication: BREAST CANCER
     Dosage: 840 MG LOADING DOSE IN 60 MINUTES, THEN 420 MG IN 60 MINUTES, EVERY 21 DAYS
     Route: 042
  3. IBANDRONIC ACID. [Concomitant]
     Active Substance: IBANDRONIC ACID
  4. PERJETA [Suspect]
     Active Substance: PERTUZUMAB
     Route: 042
  5. DOCETAXEL. [Concomitant]
     Active Substance: DOCETAXEL
     Indication: BREAST CANCER
     Route: 065
     Dates: start: 20140710, end: 20141023
  6. HERCEPTIN [Suspect]
     Active Substance: TRASTUZUMAB
     Indication: BREAST CANCER
     Dosage: 8 MG / KG (LOADING DOSE) AND THEN 6 MG / KG EVERY 21 DAYS
     Route: 042
     Dates: start: 20140710, end: 20141023
  7. CARBOPLATIN. [Concomitant]
     Active Substance: CARBOPLATIN
     Indication: BREAST CANCER
     Dosage: AUC 5
     Route: 065
     Dates: start: 20140710, end: 20141023

REACTIONS (4)
  - Aortic valve sclerosis [Unknown]
  - Mitral valve sclerosis [Unknown]
  - Metastases to spine [Unknown]
  - Metastases to bone [Unknown]
